FAERS Safety Report 4560082-3 (Version None)
Quarter: 2005Q1

REPORT INFORMATION
  Report Type: 
  Country: None (occurrence: None)
  Receive Date: 20050120
  Receipt Date: 20050120
  Transmission Date: 20050727
  Serious: Yes (Other)
  Sender: FDA-Public Use
  Company Number: None

PATIENT
  Age: 48 Year
  Sex: Female

DRUGS (4)
  1. LORAZEPAM [Suspect]
     Indication: AGITATION
     Dosage: TAKE 1 TABLET TWICE A DAY AS NEEDED
     Route: 048
  2. BUPROPION HCL [Concomitant]
  3. BUSPIRONE HCL [Concomitant]
  4. LAMICTAL [Concomitant]

REACTIONS (1)
  - DRUG EFFECT DECREASED [None]
